FAERS Safety Report 4717435-X (Version None)
Quarter: 2005Q3

REPORT INFORMATION
  Report Type: 
  Country: None (occurrence: None)
  Receive Date: 20050719
  Receipt Date: 20050714
  Transmission Date: 20060218
  Serious: Yes (Hospitalization)
  Sender: FDA-Public Use
  Company Number: DE-MERCK-0507DEU00108

PATIENT
  Age: 56 Year
  Sex: Male
  Weight: 102 kg

DRUGS (15)
  1. VIOXX [Suspect]
     Indication: SPINAL OSTEOARTHRITIS
     Route: 048
     Dates: start: 20000314
  2. VIOXX [Suspect]
     Indication: ARTHROPATHY
     Route: 048
     Dates: start: 20000314
  3. METOPROLOL SUCCINATE [Concomitant]
     Indication: CORONARY ARTERY DISEASE
     Route: 048
     Dates: start: 20010601
  4. METOPROLOL SUCCINATE [Concomitant]
     Indication: HYPERTENSION
     Route: 048
     Dates: start: 20010601
  5. [THERAPY UNSPECIFIED] [Concomitant]
     Indication: HYPERTENSION
     Route: 048
     Dates: start: 20010101, end: 20030301
  6. PRAVASTATIN SODIUM [Concomitant]
     Indication: HYPERLIPIDAEMIA
     Route: 048
     Dates: start: 19970601
  7. INSULIN, NEUTRAL [Concomitant]
     Indication: DIABETES MELLITUS
     Route: 051
     Dates: start: 19991201
  8. INSULIN HUMAN, ISOPHANE [Concomitant]
     Indication: DIABETES MELLITUS
     Route: 051
     Dates: start: 19991201
  9. ALLOPURINOL [Concomitant]
     Indication: HYPERURICAEMIA
     Route: 048
     Dates: start: 20010901
  10. PIRETANIDE [Concomitant]
     Indication: HYPERTENSION
     Route: 048
     Dates: start: 19991201
  11. OMEPRAZOLE [Concomitant]
     Indication: GASTRIC DISORDER
     Route: 048
  12. METFORMIN HYDROCHLORIDE [Concomitant]
     Indication: DIABETES MELLITUS
     Route: 048
     Dates: start: 20001001
  13. XIPAMIDE [Concomitant]
     Indication: HYPERTENSION
     Route: 048
     Dates: start: 19971001
  14. ASPIRIN [Concomitant]
     Indication: CORONARY ARTERY DISEASE
     Route: 048
     Dates: start: 20020901
  15. POTASSIUM BICARBONATE AND POTASSIUM CITRATE [Concomitant]
     Route: 048

REACTIONS (1)
  - CEREBROVASCULAR DISORDER [None]
